FAERS Safety Report 24394701 (Version 1)
Quarter: 2024Q4

REPORT INFORMATION
  Report Type: Spontaneous
  Country: DE (occurrence: DE)
  Receive Date: 20241004
  Receipt Date: 20241004
  Transmission Date: 20250115
  Serious: Yes (Other)
  Sender: SANDOZ
  Company Number: DE-SANDOZ-SDZ2024DE083006

PATIENT
  Age: 70 Year
  Sex: Female

DRUGS (2)
  1. METFORMIN HYDROCHLORIDE [Suspect]
     Active Substance: METFORMIN HYDROCHLORIDE
     Dosage: 1000 MG
     Route: 065
  2. METFORMIN HYDROCHLORIDE [Suspect]
     Active Substance: METFORMIN HYDROCHLORIDE
     Indication: Product used for unknown indication
     Dosage: 500 MG
     Route: 065

REACTIONS (9)
  - Arrhythmia [Unknown]
  - Blood glucose increased [Unknown]
  - Blood creatine increased [Unknown]
  - Fatigue [Unknown]
  - Hypertension [Unknown]
  - Cardiovascular disorder [Unknown]
  - Vulvovaginal mycotic infection [Unknown]
  - Bone disorder [Unknown]
  - Off label use [Unknown]
